FAERS Safety Report 5838813-1 (Version None)
Quarter: 2008Q3

REPORT INFORMATION
  Report Type: 
  Country: None (occurrence: None)
  Receive Date: 20080808
  Receipt Date: 20080729
  Transmission Date: 20090109
  Serious: No
  Sender: FDA-Public Use
  Company Number: US-ELI_LILLY_AND_COMPANY-US200806005213

PATIENT
  Age: 33 Year
  Sex: Female
  Weight: 92.971 kg

DRUGS (2)
  1. CYMBALTA [Suspect]
     Indication: PANIC DISORDER
     Dates: start: 20070213, end: 20080128
  2. CYMBALTA [Suspect]
     Dates: start: 20080101, end: 20080101

REACTIONS (3)
  - ALANINE AMINOTRANSFERASE INCREASED [None]
  - ANTINUCLEAR ANTIBODY POSITIVE [None]
  - ASPARTATE AMINOTRANSFERASE INCREASED [None]
